FAERS Safety Report 9700282 (Version 2)
Quarter: 2014Q1

REPORT INFORMATION
  Report Type: Report from Study
  Country: JP (occurrence: JP)
  Receive Date: 20131121
  Receipt Date: 20140129
  Transmission Date: 20141002
  Serious: Yes (Other)
  Sender: FDA-Public Use
  Company Number: JP-JNJFOC-20131109524

PATIENT
  Age: 70 Year
  Sex: Female

DRUGS (12)
  1. SIMPONI [Suspect]
     Indication: RHEUMATOID ARTHRITIS
     Route: 058
     Dates: start: 20131111
  2. SIMPONI [Suspect]
     Indication: RHEUMATOID ARTHRITIS
     Route: 058
     Dates: start: 20130527, end: 20130527
  3. SIMPONI [Suspect]
     Indication: RHEUMATOID ARTHRITIS
     Route: 058
     Dates: start: 20130624, end: 20130624
  4. SIMPONI [Suspect]
     Indication: RHEUMATOID ARTHRITIS
     Route: 058
     Dates: start: 20130722, end: 20130722
  5. SIMPONI [Suspect]
     Indication: RHEUMATOID ARTHRITIS
     Route: 058
     Dates: start: 20130819, end: 20130819
  6. SIMPONI [Suspect]
     Indication: RHEUMATOID ARTHRITIS
     Route: 058
     Dates: start: 20130909, end: 20130909
  7. SIMPONI [Suspect]
     Indication: RHEUMATOID ARTHRITIS
     Route: 058
     Dates: start: 20131007, end: 20131007
  8. METHOTREXATE [Suspect]
     Indication: RHEUMATOID ARTHRITIS
     Route: 065
     Dates: start: 20130527
  9. THYRADIN S [Concomitant]
     Indication: HYPOTHYROIDISM
     Route: 048
  10. NEXIUM [Concomitant]
     Indication: PROPHYLAXIS
     Route: 048
  11. FOLIAMIN [Concomitant]
     Indication: PROPHYLAXIS
     Route: 065
  12. MAGMITT [Concomitant]
     Indication: PROPHYLAXIS
     Route: 048

REACTIONS (1)
  - Hepatic function abnormal [Recovered/Resolved]
